FAERS Safety Report 12420915 (Version 3)
Quarter: 2016Q3

REPORT INFORMATION
  Report Type: Report from Study
  Country: CA (occurrence: CA)
  Receive Date: 20160531
  Receipt Date: 20160729
  Transmission Date: 20161109
  Serious: Yes (Hospitalization, Other)
  Sender: FDA-Public Use
  Company Number: CA-GILEAD-2016-0215060

PATIENT
  Age: 77 Year
  Sex: Male

DRUGS (27)
  1. LANSOPRAZOLE. [Concomitant]
     Active Substance: LANSOPRAZOLE
  2. NASONEX [Concomitant]
     Active Substance: MOMETASONE FUROATE
  3. FRAGMIN [Concomitant]
     Active Substance: DALTEPARIN SODIUM
  4. METOCLOPRAMIDE. [Concomitant]
     Active Substance: METOCLOPRAMIDE
  5. TYLENOL WITH CODEINE [Concomitant]
     Active Substance: ACETAMINOPHEN\CODEINE PHOSPHATE
  6. IDELALISIB [Suspect]
     Active Substance: IDELALISIB
     Indication: NON-HODGKIN^S LYMPHOMA UNSPECIFIED HISTOLOGY INDOLENT
     Dosage: 150 MG, BID
     Route: 048
     Dates: start: 20160201, end: 20160718
  7. AMLODIPINE [Concomitant]
     Active Substance: AMLODIPINE BESYLATE
  8. FLOVENT [Concomitant]
     Active Substance: FLUTICASONE PROPIONATE
  9. MULTI-VITAMIN [Concomitant]
     Active Substance: .ALPHA.-TOCOPHEROL ACETATE, DL-\ASCORBIC ACID\CYANOCOBALAMIN\FLUORIDE ION\FOLIC ACID\NIACIN\PYRIDOXINE\RIBOFLAVIN\THIAMINE\VITAMIN A\VITAMIN D
  10. VITAMINS WITH MINERALS [Concomitant]
     Active Substance: MINERALS\VITAMINS
  11. ORACORT                            /00031902/ [Concomitant]
  12. ALLOPURINOL. [Concomitant]
     Active Substance: ALLOPURINOL
  13. SALBUTAMOL [Concomitant]
     Active Substance: ALBUTEROL
  14. PROCHLORPERAZINE. [Concomitant]
     Active Substance: PROCHLORPERAZINE
  15. VALSARTAN. [Concomitant]
     Active Substance: VALSARTAN
  16. MINERAL OIL. [Concomitant]
     Active Substance: MINERAL OIL
  17. FUROSEMIDE. [Concomitant]
     Active Substance: FUROSEMIDE
  18. LACTULOSE. [Concomitant]
     Active Substance: LACTULOSE
  19. ROSUVASTATIN. [Concomitant]
     Active Substance: ROSUVASTATIN
  20. ASA [Concomitant]
     Active Substance: ASPIRIN
  21. VITAMIN D [Concomitant]
     Active Substance: CHOLECALCIFEROL
  22. PREDNISONE. [Concomitant]
     Active Substance: PREDNISONE
  23. TERAZOSIN [Concomitant]
     Active Substance: TERAZOSIN\TERAZOSIN HYDROCHLORIDE
  24. DOCUSATE [Concomitant]
     Active Substance: DOCUSATE
  25. FOLIC ACID. [Concomitant]
     Active Substance: FOLIC ACID
  26. SPIRONOLACTONE. [Concomitant]
     Active Substance: SPIRONOLACTONE
  27. ONDASETRON                         /00955301/ [Concomitant]
     Active Substance: ONDANSETRON

REACTIONS (16)
  - Epistaxis [Unknown]
  - Tumour haemorrhage [Unknown]
  - Adverse drug reaction [Unknown]
  - Candida infection [Unknown]
  - Drug dose omission [Recovered/Resolved]
  - Appetite disorder [Unknown]
  - Pain [Unknown]
  - Cough [Not Recovered/Not Resolved]
  - Muscle spasms [Unknown]
  - Dyspnoea [Not Recovered/Not Resolved]
  - Constipation [Not Recovered/Not Resolved]
  - Therapeutic response unexpected [Unknown]
  - Tumour lysis syndrome [Unknown]
  - Pleural effusion [Unknown]
  - Drug interaction [Unknown]
  - Rash [Unknown]

NARRATIVE: CASE EVENT DATE: 20160513
